FAERS Safety Report 9830104 (Version 1)
Quarter: 2014Q1

REPORT INFORMATION
  Report Type: Spontaneous
  Country: US (occurrence: US)
  Receive Date: 20140120
  Receipt Date: 20140120
  Transmission Date: 20141002
  Serious: Yes (Other)
  Sender: FDA-Public Use
  Company Number: US-BAYER-2014-006873

PATIENT
  Sex: 0

DRUGS (1)
  1. CIPRO [Suspect]

REACTIONS (3)
  - Ear disorder [Not Recovered/Not Resolved]
  - Back disorder [Not Recovered/Not Resolved]
  - Joint injury [Not Recovered/Not Resolved]
